FAERS Safety Report 9904254 (Version 1)
Quarter: 2014Q1

REPORT INFORMATION
  Report Type: Spontaneous
  Country: AU (occurrence: AU)
  Receive Date: 20140218
  Receipt Date: 20140218
  Transmission Date: 20141002
  Serious: Yes (Life-Threatening)
  Sender: FDA-Public Use
  Company Number: AU-ROCHE-1348431

PATIENT
  Age: 83 Year
  Sex: Male

DRUGS (9)
  1. TOCILIZUMAB [Suspect]
     Indication: RHEUMATOID ARTHRITIS
     Route: 065
  2. CELECOXIB [Concomitant]
  3. FOLIC ACID [Concomitant]
  4. HYDROXYCHLOROQUINE SULPHATE [Concomitant]
  5. METFORMIN HYDROCHLORIDE [Concomitant]
     Route: 065
  6. METHOTREXATE [Concomitant]
  7. MIXTARD 30/70 [Concomitant]
  8. PANTOPRAZOLE [Concomitant]
  9. PREDNISOLONE [Concomitant]

REACTIONS (2)
  - Klebsiella sepsis [Not Recovered/Not Resolved]
  - Multi-organ failure [Not Recovered/Not Resolved]
